FAERS Safety Report 18319560 (Version 4)
Quarter: 2020Q3

REPORT INFORMATION
  Report Type: Spontaneous
  Country: US (occurrence: US)
  Receive Date: 20200928
  Receipt Date: 20200930
  Transmission Date: 20201103
  Serious: Yes (Other)
  Sender: FDA-Public Use
  Company Number: US-PFIZER INC-2020364738

PATIENT
  Age: 66 Year
  Sex: Female
  Weight: 54.43 kg

DRUGS (5)
  1. DUAVEE [Suspect]
     Active Substance: BAZEDOXIFENE ACETATE\ESTROGENS, CONJUGATED
     Indication: OSTEOPENIA
     Dosage: UNK, 1X/DAY (0.45MG/20MG TABLET BY MOUTH, ONCE A DAY)
     Route: 048
     Dates: start: 201912
  2. BUPROPION. [Concomitant]
     Active Substance: BUPROPION
     Indication: STRESS
     Dosage: 150 MG, 1X/DAY
     Dates: start: 20200827
  3. ESTRING [Suspect]
     Active Substance: ESTRADIOL
     Dosage: UNK (1 RING OF 3 MONTHS)
     Route: 067
     Dates: start: 2018
  4. PRILOSEC [Concomitant]
     Active Substance: OMEPRAZOLE MAGNESIUM
     Indication: DYSPEPSIA
     Dosage: 40 MG, 1X/DAY
     Dates: start: 20200611
  5. ESTRING [Suspect]
     Active Substance: ESTRADIOL
     Indication: VULVOVAGINAL DRYNESS
     Dosage: UNK (INSERTS AN ESTRING VAGINALLY EVERY 90 DAYS)
     Route: 067
     Dates: start: 201707

REACTIONS (3)
  - Contraindicated product administered [Unknown]
  - Stress [Unknown]
  - Alopecia [Not Recovered/Not Resolved]

NARRATIVE: CASE EVENT DATE: 202002
